FAERS Safety Report 6268415-7 (Version None)
Quarter: 2009Q3

REPORT INFORMATION
  Report Type: 
  Country: None (occurrence: None)
  Receive Date: 20090713
  Receipt Date: 20090713
  Transmission Date: 20100115
  Serious: No
  Sender: FDA-Public Use
  Company Number: None

PATIENT
  Age: 73 Year
  Sex: Male

DRUGS (3)
  1. SIMVASTATIN [Suspect]
     Indication: HYPERLIPIDAEMIA
     Dosage: 80 MG HS PO
     Route: 048
     Dates: start: 20050726, end: 20090515
  2. SIMVASTATIN [Suspect]
     Indication: RENAL TRANSPLANT
     Dosage: 80 MG HS PO
     Route: 048
     Dates: start: 20050726, end: 20090515
  3. TACROLIMUS [Suspect]
     Dosage: 1 MG BID PO
     Route: 048
     Dates: start: 20050913

REACTIONS (2)
  - BLOOD CREATINE PHOSPHOKINASE INCREASED [None]
  - MYALGIA [None]
